FAERS Safety Report 11517089 (Version 2)
Quarter: 2015Q4

REPORT INFORMATION
  Report Type: Spontaneous
  Country: US (occurrence: US)
  Receive Date: 20150917
  Receipt Date: 20151002
  Transmission Date: 20160304
  Serious: Yes (Death, Life-Threatening, Other)
  Sender: FDA-Public Use
  Company Number: US-GLAXOSMITHKLINE-US2015GSK131530

PATIENT
  Age: 85 Year
  Sex: Male

DRUGS (1)
  1. VOTRIENT [Suspect]
     Active Substance: PAZOPANIB HYDROCHLORIDE
     Indication: PRODUCT USED FOR UNKNOWN INDICATION
     Dosage: 200 MG, U
     Route: 048
     Dates: end: 20150709

REACTIONS (2)
  - Death [Fatal]
  - Hospice care [Unknown]

NARRATIVE: CASE EVENT DATE: 20150716
